FAERS Safety Report 13037738 (Version 1)
Quarter: 2016Q4

REPORT INFORMATION
  Report Type: Spontaneous
  Country: NL (occurrence: NL)
  Receive Date: 20161217
  Receipt Date: 20161217
  Transmission Date: 20170207
  Serious: Yes (Hospitalization)
  Sender: FDA-Public Use
  Company Number: NL-ASTRAZENECA-2016SF30717

PATIENT
  Age: 64 Year
  Sex: Female

DRUGS (9)
  1. METHYLENE BLUE. [Suspect]
     Active Substance: METHYLENE BLUE
     Indication: VASOPLEGIA SYNDROME
     Dosage: 2 MG/KG
  2. S-KETAMINE [Suspect]
     Active Substance: ESKETAMINE
     Dosage: 25.0MG UNKNOWN
  3. DESFLURANE. [Concomitant]
     Active Substance: DESFLURANE
     Indication: VASOPLEGIA SYNDROME
  4. CLONAZEPAM. [Concomitant]
     Active Substance: CLONAZEPAM
  5. QUETIAPINE. [Suspect]
     Active Substance: QUETIAPINE
     Route: 048
  6. GRANISETRON [Suspect]
     Active Substance: GRANISETRON
     Dosage: 1.0MG UNKNOWN
  7. VASOPRESSIN. [Concomitant]
     Active Substance: VASOPRESSIN
     Indication: VASOPLEGIA SYNDROME
  8. PAROXETINE. [Suspect]
     Active Substance: PAROXETINE
  9. NOREPINEPHRINE [Concomitant]
     Active Substance: NOREPINEPHRINE\NOREPINEPHRINE BITARTRATE

REACTIONS (3)
  - Serotonin syndrome [Recovered/Resolved]
  - Renal impairment [Recovered/Resolved]
  - Hepatic function abnormal [Recovered/Resolved]
